FAERS Safety Report 9347925 (Version 2)
Quarter: 2013Q4

REPORT INFORMATION
  Report Type: Spontaneous
  Country: US (occurrence: US)
  Receive Date: 20130614
  Receipt Date: 20131022
  Transmission Date: 20140711
  Serious: Yes (Hospitalization)
  Sender: FDA-Public Use
  Company Number: US-BAYER-2013-068849

PATIENT
  Age: 38 Year
  Sex: Female
  Weight: 145.13 kg

DRUGS (32)
  1. MIRENA [Suspect]
     Indication: PREVENTION OF ENDOMETRIAL HYPERPLASIA
     Dosage: 20 MCG/24HR, CONT
     Route: 015
     Dates: start: 20100525, end: 20110614
  2. KLONOPIN [Concomitant]
     Dosage: 05 MG QAM, 1.5 MG Q.P.M
     Dates: start: 20110613
  3. CRESTOR [Concomitant]
  4. DIVALPROEX SODIUM [Concomitant]
  5. ABILIFY [Concomitant]
     Dosage: 30 MG, UNK
     Dates: start: 20110613
  6. AMBIEN [Concomitant]
     Dosage: 130 MG, AT BEDTIME AS NEEDED
     Route: 048
     Dates: start: 20110613
  7. ANTIVERT [Concomitant]
     Dosage: 24 EVERY 6 HOURS AS NEEDED
     Dates: start: 20110613
  8. DETROL LA [Concomitant]
     Dosage: 4
     Dates: start: 20110613
  9. EFFEXOR XR [Concomitant]
     Dosage: 225
     Dates: start: 20110613
  10. LANTUS [Concomitant]
     Dosage: 65 TWICE DAILY
     Dates: start: 20110613
  11. HUMALOG [Concomitant]
     Dosage: 10 Q.A.C.
     Dates: start: 20110613
  12. HUMALOG [INSULIN] [Concomitant]
     Dosage: UNK
     Dates: start: 20110613
  13. IMITREX [Concomitant]
     Dosage: 25 AS NEEDED
     Dates: start: 20110613
  14. LISINOPRIL [Concomitant]
     Dosage: 10
     Dates: start: 20110613
  15. ASPIRIN [Concomitant]
     Dosage: 81
     Dates: start: 20110613
  16. LYRICA [Concomitant]
     Dosage: 75 AT BEDTIME
     Dates: start: 20110613
  17. METFORMIN [Concomitant]
     Dosage: 500
     Dates: start: 20110613
  18. NEXIUM [Concomitant]
     Dosage: 40 MG, UNK
     Dates: start: 20110613
  19. SEROQUEL [Concomitant]
     Dosage: 300 MG, AT BEDTIME
     Dates: start: 20110613
  20. REGLAN [Concomitant]
     Dosage: 10 MG, EVERY 6 HOURS AS NEEDED
     Dates: start: 20110613
  21. TOPROL XL [Concomitant]
     Dosage: 25
     Dates: start: 20110613
  22. TRICOR [Concomitant]
     Dosage: 48 MG, UNK
     Dates: start: 20110613
  23. TRILEPTAL [Concomitant]
     Dosage: 150
     Dates: start: 20110613
  24. ALBUTEROL [Concomitant]
     Dosage: AS NEEDED
     Dates: start: 20110613
  25. ZOCOR [Concomitant]
     Dosage: 80 MG, UNK
     Dates: start: 20110613
  26. FENTANYL [Concomitant]
  27. TESSALON PERLES [Concomitant]
  28. CIPRO [Concomitant]
  29. FLAGYL [Concomitant]
  30. CLINDAMYCIN [Concomitant]
  31. VICODIN [Concomitant]
  32. MOTRIN [Concomitant]

REACTIONS (12)
  - Uterine perforation [None]
  - Wound infection [None]
  - Wound dehiscence [None]
  - Abdominal pain [None]
  - White blood cell count increased [None]
  - Blood glucose increased [None]
  - Injury [None]
  - Pain [None]
  - Diverticulitis [None]
  - Colitis [None]
  - Pelvic fluid collection [None]
  - Post procedural discharge [None]
